FAERS Safety Report 10375607 (Version 1)
Quarter: 2014Q3

REPORT INFORMATION
  Report Type: Spontaneous
  Country: US (occurrence: US)
  Receive Date: 20140811
  Receipt Date: 20140811
  Transmission Date: 20150326
  Serious: No
  Sender: FDA-Public Use
  Company Number: US-GLAXOSMITHKLINE-A1049213A

PATIENT
  Age: 46 Year
  Sex: Male

DRUGS (3)
  1. REQUIP XL [Suspect]
     Active Substance: ROPINIROLE HYDROCHLORIDE
     Indication: PARKINSON^S DISEASE
     Dosage: 16MG PER DAY
     Route: 065
     Dates: start: 201112
  2. AZILECT [Concomitant]
     Active Substance: RASAGILINE MESYLATE
  3. LEVODOPA [Concomitant]
     Active Substance: LEVODOPA

REACTIONS (8)
  - Paranoia [Not Recovered/Not Resolved]
  - Hostility [Not Recovered/Not Resolved]
  - Abnormal behaviour [Not Recovered/Not Resolved]
  - Suspiciousness [Not Recovered/Not Resolved]
  - Obsessive-compulsive disorder [Not Recovered/Not Resolved]
  - Mania [Not Recovered/Not Resolved]
  - Withdrawal syndrome [Not Recovered/Not Resolved]
  - Marital problem [Not Recovered/Not Resolved]
